FAERS Safety Report 14423437 (Version 1)
Quarter: 2018Q1

REPORT INFORMATION
  Report Type: Spontaneous
  Country: DE (occurrence: DE)
  Receive Date: 20180123
  Receipt Date: 20180123
  Transmission Date: 20180509
  Serious: Yes (Other)
  Sender: FDA-Public Use
  Company Number: DE-TEVA-2018-DE-848059

PATIENT
  Age: 76 Year
  Sex: Female

DRUGS (3)
  1. CLOPIDOGREL [Suspect]
     Active Substance: CLOPIDOGREL BISULFATE
     Dosage: UNK
     Route: 065
  2. ASS 100 [Interacting]
     Active Substance: ASPIRIN
     Route: 065
  3. XARELTO [Interacting]
     Active Substance: RIVAROXABAN
     Dosage: UNK
     Route: 065
     Dates: start: 201710

REACTIONS (3)
  - Haematoma [Unknown]
  - Haemorrhagic diathesis [Unknown]
  - Drug interaction [Unknown]
